FAERS Safety Report 9292364 (Version 2)
Quarter: 2013Q3

REPORT INFORMATION
  Report Type: Spontaneous
  Country: GB (occurrence: GB)
  Receive Date: 20130516
  Receipt Date: 20130729
  Transmission Date: 20140515
  Serious: Yes (Other)
  Sender: FDA-Public Use
  Company Number: GB-GENZYME-FABR-1003253

PATIENT
  Age: 43 Year
  Sex: Female

DRUGS (1)
  1. FABRAZYME [Suspect]
     Indication: FABRY^S DISEASE
     Dosage: UNK
     Route: 042

REACTIONS (5)
  - Loss of consciousness [Unknown]
  - Gastric infection [Unknown]
  - Tooth infection [Unknown]
  - Toothache [Unknown]
  - Abdominal pain [Unknown]
